FAERS Safety Report 7959913-6 (Version None)
Quarter: 2011Q4

REPORT INFORMATION
  Report Type: 
  Country: None (occurrence: None)
  Receive Date: 20111206
  Receipt Date: 20111202
  Transmission Date: 20120403
  Serious: Yes (Other)
  Sender: FDA-Public Use
  Company Number: FR-MERCK-1112FRA00013

PATIENT
  Age: 79 Year
  Sex: Female

DRUGS (5)
  1. JANUMET [Suspect]
     Route: 048
     Dates: start: 20111026, end: 20111026
  2. MOXONIDINE [Concomitant]
     Route: 048
     Dates: start: 20010101
  3. GLICLAZIDE [Concomitant]
     Route: 048
     Dates: start: 20010101
  4. NICARDIPINE HYDROCHLORIDE [Concomitant]
     Route: 048
     Dates: start: 20010101
  5. HYDROCHLOROTHIAZIDE AND IRBESARTAN [Concomitant]
     Route: 048
     Dates: start: 20010101

REACTIONS (5)
  - SPEECH DISORDER [None]
  - TONGUE PARALYSIS [None]
  - PAIN IN EXTREMITY [None]
  - DRY MOUTH [None]
  - FEELING COLD [None]
